FAERS Safety Report 15753700 (Version 2)
Quarter: 2019Q1

REPORT INFORMATION
  Report Type: Spontaneous
  Country: DE (occurrence: DE)
  Receive Date: 20181222
  Receipt Date: 20190103
  Transmission Date: 20190417
  Serious: Yes (Hospitalization, Other)
  Sender: FDA-Public Use
  Company Number: DE-ACCORD-097013

PATIENT
  Age: 40 Year
  Sex: Female
  Weight: 50 kg

DRUGS (2)
  1. TICAGRELOR. [Suspect]
     Active Substance: TICAGRELOR
     Indication: CEREBRAL INFARCTION
     Dosage: DAILY DOSE: 120 MG MILLIGRAM(S) EVERY DAY
     Route: 048
     Dates: start: 2017, end: 20171005
  2. CLOPIDOGREL [Suspect]
     Active Substance: CLOPIDOGREL BISULFATE
     Indication: CEREBRAL INFARCTION
     Route: 048
     Dates: start: 201706

REACTIONS (2)
  - Drug-induced liver injury [Recovering/Resolving]
  - Hepatitis cholestatic [Recovering/Resolving]

NARRATIVE: CASE EVENT DATE: 20171005
